FAERS Safety Report 18459553 (Version 2)
Quarter: 2022Q2

REPORT INFORMATION
  Report Type: Spontaneous
  Country: US (occurrence: US)
  Receive Date: 20201103
  Receipt Date: 20220415
  Transmission Date: 20220721
  Serious: No
  Sender: FDA-Public Use
  Company Number: US-PFIZER INC-2020421405

PATIENT
  Age: 68 Year
  Sex: Male
  Weight: 96.62 kg

DRUGS (4)
  1. INLYTA [Suspect]
     Active Substance: AXITINIB
     Indication: Renal cancer
     Dosage: 5 MG, 2X/DAY (5MG ONE TABLET TWICE DAILY BY MOUTH)
     Route: 048
     Dates: start: 20200730
  2. INLYTA [Suspect]
     Active Substance: AXITINIB
     Indication: Metastases to central nervous system
     Dosage: 5 MG, 2X/DAY (5 MG TWICE DAILY BY MOUTH)
     Route: 048
     Dates: start: 20200901
  3. INLYTA [Suspect]
     Active Substance: AXITINIB
     Indication: Renal cell carcinoma
  4. KEYTRUDA [Concomitant]
     Active Substance: PEMBROLIZUMAB
     Dosage: UNK

REACTIONS (3)
  - Dysphagia [Unknown]
  - Rash [Recovering/Resolving]
  - Dry mouth [Unknown]
